FAERS Safety Report 8032908-2 (Version None)
Quarter: 2011Q4

REPORT INFORMATION
  Report Type: 
  Country: None (occurrence: None)
  Receive Date: 20111202
  Receipt Date: 20100713
  Transmission Date: 20120403
  Serious: Yes (Other)
  Sender: FDA-Public Use
  Company Number: 2010SP038534

PATIENT
  Age: 24 Year
  Sex: Female
  Weight: 68.0396 kg

DRUGS (1)
  1. NUVARING [Suspect]
     Indication: CONTRACEPTION
     Dates: start: 20070601, end: 20070716

REACTIONS (4)
  - PAIN [None]
  - TRANSIENT ISCHAEMIC ATTACK [None]
  - CHEST INJURY [None]
  - METRORRHAGIA [None]
